FAERS Safety Report 11349791 (Version 1)
Quarter: 2015Q3

REPORT INFORMATION
  Report Type: Spontaneous
  Country: US (occurrence: None)
  Receive Date: 20150806
  Receipt Date: 20150806
  Transmission Date: 20151125
  Serious: Yes (Other)
  Sender: FDA-Public Use
  Company Number: None

PATIENT
  Age: 66 Year
  Sex: Female
  Weight: 79.38 kg

DRUGS (8)
  1. KIRKLAND SIGNATURE ALLER TEC ALLERGY [Suspect]
     Active Substance: CETIRIZINE HYDROCHLORIDE
     Indication: SEASONAL ALLERGY
     Dates: start: 20150201, end: 20150501
  2. CALCIUM [Concomitant]
     Active Substance: CALCIUM
  3. D-3 [Concomitant]
     Active Substance: CHOLECALCIFEROL
  4. LEVOTHYROXINE. [Concomitant]
     Active Substance: LEVOTHYROXINE
  5. MAGNESIUM [Concomitant]
     Active Substance: MAGNESIUM
  6. CRESTOR [Concomitant]
     Active Substance: ROSUVASTATIN CALCIUM
  7. PROBIOTIC [Concomitant]
     Active Substance: PROBIOTICS NOS
  8. CURCUMIN [Concomitant]
     Active Substance: CURCUMIN

REACTIONS (4)
  - Pruritus generalised [None]
  - Urticaria [None]
  - Scratch [None]
  - Insomnia [None]

NARRATIVE: CASE EVENT DATE: 20150804
